FAERS Safety Report 9036276 (Version 2)
Quarter: 2013Q1

REPORT INFORMATION
  Report Type: Spontaneous
  Country: BR (occurrence: None)
  Receive Date: 20130114
  Receipt Date: 20130213
  Transmission Date: 20140127
  Serious: Yes (Death)
  Sender: FDA-Public Use
  Company Number: DSU-2013-00065

PATIENT
  Age: 67 Year
  Sex: Female
  Weight: 52 kg

DRUGS (9)
  1. OLMETEC HCT (HYDROCHLOROTHIAZIDE, OLMESARTAN MEDOXOMIL) (TABLET) (HYDROCHLOROTHIAZIDE, OLMESARTAN MEDOXOMIL) [Suspect]
     Indication: HYPERTENSION
     Route: 048
     Dates: start: 20100412, end: 20120131
  2. NORVASC [Suspect]
     Indication: HYPERTENSION
     Route: 048
     Dates: start: 20100412, end: 20120131
  3. TAPAZOL(THIAMAZOLE) (10 MILLIGRAM) (THIAMAZOLE) [Concomitant]
  4. SELOKEN(METOPROLOL TARTRATE) (METOPROLOL TARTRATE) [Concomitant]
  5. ATENSINA(CLONIDINE HYDROCHLORIDE) (0.15 MILLIGRAM) (CLONIDINE HYDROCHLORIDE) [Concomitant]
  6. COMBIRON FOLIC(FOLIC ACID, VITAMINS NOS, MINERALS NOS) (FOLIC ACID, VITAMINS NOS, MINERALS NOS) [Concomitant]
  7. AAS(ACETYLSALICYLIC ACID) (100 MILLIGRAM) (ACETYLSALICYLIC ACID) [Concomitant]
  8. GARDENAL(PHENOBARBITAL SODIUM) (PHENOBARBITAL SODIUM) [Concomitant]
  9. TEGRETOL(CARBAMAZEPINE) (200 MILLIGRAM) (CARBAMAZEPINE) [Concomitant]

REACTIONS (1)
  - Renal disorder [None]
